FAERS Safety Report 9190117 (Version 1)
Quarter: 2013Q1

REPORT INFORMATION
  Report Type: Spontaneous
  Country: US (occurrence: US)
  Receive Date: 20130326
  Receipt Date: 20130326
  Transmission Date: 20140127
  Serious: No
  Sender: FDA-Public Use
  Company Number: US-PFIZER INC-2013094089

PATIENT
  Sex: Male

DRUGS (2)
  1. QUILLIVANT XR [Suspect]
     Dosage: 20 MG, UNK
     Route: 048
     Dates: start: 201303, end: 201303
  2. QUILLIVANT XR [Suspect]
     Dosage: 50 MG, UNK
     Route: 048
     Dates: start: 201303, end: 201303

REACTIONS (3)
  - Aggression [Unknown]
  - Mood altered [Unknown]
  - Emotional disorder [Unknown]
